FAERS Safety Report 8995547 (Version 1)
Quarter: 2013Q1

REPORT INFORMATION
  Report Type: Spontaneous
  Country: US (occurrence: US)
  Receive Date: 20130103
  Receipt Date: 20130103
  Transmission Date: 20140127
  Serious: No
  Sender: FDA-Public Use
  Company Number: US-ABBOTT-12P-163-1023926-00

PATIENT
  Sex: Female

DRUGS (8)
  1. LEVOTHYROXINE [Suspect]
     Indication: THYROID HORMONE REPLACEMENT THERAPY
     Dates: start: 201212
  2. LEVOTHYROXINE [Suspect]
     Indication: THYROID HORMONE REPLACEMENT THERAPY
     Dates: start: 201211, end: 201212
  3. LEVOTHYROXINE [Suspect]
     Indication: THYROID HORMONE REPLACEMENT THERAPY
     Dosage: VARIOUS DOSES
  4. NO DRUG NAME [Concomitant]
     Indication: MIGRAINE
  5. DULOXETINE HYDROCHLORIDE [Concomitant]
     Indication: PRODUCT USED FOR UNKNOWN INDICATION
  6. ESTROGENS CONJUGATED [Concomitant]
     Indication: PRODUCT USED FOR UNKNOWN INDICATION
  7. ATORVASTATIN [Concomitant]
     Indication: PRODUCT USED FOR UNKNOWN INDICATION
  8. METFORMIN [Concomitant]
     Indication: DIABETES MELLITUS

REACTIONS (1)
  - Hypersensitivity [Not Recovered/Not Resolved]
